FAERS Safety Report 6666260-1 (Version None)
Quarter: 2010Q2

REPORT INFORMATION
  Report Type: 
  Country: None (occurrence: None)
  Receive Date: 20100402
  Receipt Date: 20100118
  Transmission Date: 20101027
  Serious: Yes (Other)
  Sender: FDA-Public Use
  Company Number: US-JNJFOC-20100201145

PATIENT
  Age: 55 Year
  Sex: Female
  Weight: 71.67 kg

DRUGS (2)
  1. MOTRIN IB [Suspect]
     Route: 048
  2. MOTRIN IB [Suspect]
     Indication: HEADACHE
     Route: 048

REACTIONS (6)
  - DIZZINESS [None]
  - INCORRECT DOSE ADMINISTERED [None]
  - NAUSEA [None]
  - OROPHARYNGEAL BLISTERING [None]
  - PRODUCT ODOUR ABNORMAL [None]
  - STOMATITIS [None]
